FAERS Safety Report 9698872 (Version 1)
Quarter: 2013Q4

REPORT INFORMATION
  Report Type: Spontaneous
  Country: US (occurrence: US)
  Receive Date: 20131120
  Receipt Date: 20131120
  Transmission Date: 20140711
  Serious: No
  Sender: FDA-Public Use
  Company Number: US-TARO-2012P1065481

PATIENT
  Age: 65 Year
  Sex: Female

DRUGS (2)
  1. TRIAMCINOLONE ACETONIDE [Suspect]
     Dates: start: 201208, end: 201209
  2. TRIAMCINOLONE ACETONIDE [Suspect]
     Dates: start: 2012

REACTIONS (1)
  - Drug ineffective [Recovered/Resolved]
